FAERS Safety Report 13638652 (Version 1)
Quarter: 2017Q2

REPORT INFORMATION
  Report Type: Spontaneous
  Country: US (occurrence: US)
  Receive Date: 20170609
  Receipt Date: 20170609
  Transmission Date: 20170830
  Serious: Yes (Other)
  Sender: FDA-Public Use
  Company Number: US-VIFOR (INTERNATIONAL) INC.-VIT-2016-07112

PATIENT
  Age: 58 Year
  Sex: Female
  Weight: 107.14 kg

DRUGS (7)
  1. WARFARIN [Concomitant]
     Active Substance: WARFARIN
  2. VELTASSA [Suspect]
     Active Substance: PATIROMER
     Indication: HYPERKALAEMIA
     Route: 048
     Dates: start: 201604, end: 201609
  3. FUROSEMIDE. [Concomitant]
     Active Substance: FUROSEMIDE
  4. GLYBURIDE. [Concomitant]
     Active Substance: GLYBURIDE
  5. IRON [Concomitant]
     Active Substance: IRON
  6. LIPITOR [Concomitant]
     Active Substance: ATORVASTATIN CALCIUM
  7. SERTRALINE [Concomitant]
     Active Substance: SERTRALINE HYDROCHLORIDE

REACTIONS (4)
  - Swelling [Not Recovered/Not Resolved]
  - Chronic kidney disease [Not Recovered/Not Resolved]
  - Renal failure [Not Recovered/Not Resolved]
  - Fluid retention [Not Recovered/Not Resolved]

NARRATIVE: CASE EVENT DATE: 201609
